FAERS Safety Report 14819061 (Version 1)
Quarter: 2018Q2

REPORT INFORMATION
  Report Type: Spontaneous
  Country: CA (occurrence: CA)
  Receive Date: 20180427
  Receipt Date: 20180427
  Transmission Date: 20180711
  Serious: Yes (Life-Threatening, Hospitalization)
  Sender: FDA-Public Use
  Company Number: CA-TEVA-2018-CA-884405

PATIENT
  Age: 72 Year
  Sex: Male
  Weight: 82 kg

DRUGS (17)
  1. HEPARIN SODIUM. [Suspect]
     Active Substance: HEPARIN SODIUM
     Indication: ISCHAEMIA
     Dosage: DOSE: 1250 UNITS
     Route: 042
  2. ASA [Concomitant]
     Active Substance: ASPIRIN
  3. ACETAMINOPHEN. [Concomitant]
     Active Substance: ACETAMINOPHEN
  4. ATORVASTATIN CALCIUM. [Concomitant]
     Active Substance: ATORVASTATIN CALCIUM
  5. LEUPROLIDE [Concomitant]
     Active Substance: LEUPROLIDE
  6. TAMSULOSIN [Concomitant]
     Active Substance: TAMSULOSIN
  7. HEPARIN SODIUM. [Suspect]
     Active Substance: HEPARIN SODIUM
     Indication: DEEP VEIN THROMBOSIS
  8. PANTOPRAZOLE [Suspect]
     Active Substance: PANTOPRAZOLE
     Route: 065
  9. GABAPENTIN. [Concomitant]
     Active Substance: GABAPENTIN
  10. ONDANSETRON [Concomitant]
     Active Substance: ONDANSETRON
  11. ALLOPURINOL. [Concomitant]
     Active Substance: ALLOPURINOL
  12. DICLOFENAC SODIUM. [Concomitant]
     Active Substance: DICLOFENAC SODIUM
  13. TRANDOLAPRIL. [Concomitant]
     Active Substance: TRANDOLAPRIL
  14. HEPARIN SODIUM. [Suspect]
     Active Substance: HEPARIN SODIUM
     Indication: ATRIAL FIBRILLATION
  15. PREDNISONE (MAH UNKNOWN) [Concomitant]
     Active Substance: PREDNISONE
  16. WARFARIN [Concomitant]
     Active Substance: WARFARIN
  17. BISOPROLOL [Concomitant]
     Active Substance: BISOPROLOL

REACTIONS (3)
  - Heparin-induced thrombocytopenia [Recovered/Resolved]
  - Platelet disorder [Recovered/Resolved]
  - Thrombocytopenia [Recovered/Resolved]
